FAERS Safety Report 7408142-3 (Version None)
Quarter: 2011Q2

REPORT INFORMATION
  Report Type: 
  Country: None (occurrence: None)
  Receive Date: 20110412
  Receipt Date: 20110330
  Transmission Date: 20111010
  Serious: No
  Sender: FDA-Public Use
  Company Number: US-JNJFOC-20110400058

PATIENT
  Sex: Female
  Weight: 63.5 kg

DRUGS (7)
  1. DURAGESIC [Suspect]
     Route: 062
  2. DURAGESIC [Suspect]
     Indication: BACK PAIN
     Route: 062
  3. DURAGESIC [Suspect]
     Route: 062
  4. DURAGESIC [Suspect]
     Indication: PAIN
     Route: 062
  5. VICODIN [Concomitant]
     Indication: BREAKTHROUGH PAIN
     Route: 048
  6. FENTANYL CITRATE [Suspect]
     Indication: PAIN
     Route: 062
  7. PERCOCET [Concomitant]
     Indication: BREAKTHROUGH PAIN
     Route: 048

REACTIONS (4)
  - PAIN [None]
  - APPLICATION SITE IRRITATION [None]
  - DRUG DOSE OMISSION [None]
  - DRUG INEFFECTIVE [None]
